FAERS Safety Report 8862156 (Version 2)
Quarter: 2013Q1

REPORT INFORMATION
  Report Type: Spontaneous
  Country: US (occurrence: US)
  Receive Date: 20121026
  Receipt Date: 20130107
  Transmission Date: 20140127
  Serious: Yes (Death)
  Sender: FDA-Public Use
  Company Number: US-INCYTE CORPORATION-2012IN002109

PATIENT
  Sex: Male
  Weight: 98.41 kg

DRUGS (2)
  1. JAKAFI [Suspect]
     Indication: MYELOFIBROSIS
     Dosage: 15 MG, BID
     Route: 048
     Dates: start: 20120612, end: 20120916
  2. JAKAFI [Suspect]
     Indication: SPLENOMEGALY

REACTIONS (1)
  - Haematological malignancy [Fatal]
